FAERS Safety Report 6383344-6 (Version None)
Quarter: 2009Q4

REPORT INFORMATION
  Report Type: 
  Country: None (occurrence: None)
  Receive Date: 20091001
  Receipt Date: 20090925
  Transmission Date: 20100525
  Serious: Yes (Death, Hospitalization)
  Sender: FDA-Public Use
  Company Number: PHBS2005JP16188

PATIENT
  Sex: Male

DRUGS (6)
  1. SIMULECT [Suspect]
     Indication: RENAL TRANSPLANT
     Dosage: 20 MG INJECTION
     Route: 042
     Dates: start: 20040903, end: 20040903
  2. SIMULECT [Suspect]
     Dosage: 20 MG INJECTION
     Route: 042
     Dates: start: 20040907, end: 20040907
  3. NEORAL [Suspect]
     Indication: RENAL TRANSPLANT
     Dosage: UNK, UNK
     Route: 048
     Dates: end: 20041231
  4. NEORAL [Suspect]
     Route: 048
     Dates: start: 20050101, end: 20050105
  5. CELLCEPT [Suspect]
     Indication: RENAL TRANSPLANT
     Dosage: UNK, UNK
     Route: 048
     Dates: start: 20040903, end: 20041227
  6. PREDONINE [Suspect]
     Indication: RENAL TRANSPLANT
     Route: 048
     Dates: start: 20040903

REACTIONS (11)
  - ARTHRALGIA [None]
  - BONE MARROW FAILURE [None]
  - CELL DEATH [None]
  - EPSTEIN-BARR VIRUS INFECTION [None]
  - HISTIOCYTOSIS HAEMATOPHAGIC [None]
  - PLATELET COUNT DECREASED [None]
  - PULMONARY HAEMORRHAGE [None]
  - PYREXIA [None]
  - RESPIRATORY FAILURE [None]
  - SERUM FERRITIN INCREASED [None]
  - VIRAEMIA [None]
